FAERS Safety Report 7495636-8 (Version None)
Quarter: 2011Q2

REPORT INFORMATION
  Report Type: 
  Country: None (occurrence: None)
  Receive Date: 20110523
  Receipt Date: 20110516
  Transmission Date: 20111010
  Serious: Yes (Hospitalization, Other)
  Sender: FDA-Public Use
  Company Number: US-JNJFOC-20110409583

PATIENT
  Age: 49 Year
  Sex: Female

DRUGS (7)
  1. NUCYNTA [Suspect]
     Route: 048
     Dates: start: 20110404
  2. NUCYNTA [Suspect]
     Route: 048
     Dates: start: 20101213
  3. NUCYNTA [Suspect]
     Route: 048
  4. NUCYNTA [Suspect]
     Route: 048
     Dates: start: 20110307
  5. NUCYNTA [Suspect]
     Indication: INTENTIONAL DRUG MISUSE
     Route: 048
     Dates: start: 20110202
  6. NUCYNTA [Suspect]
     Route: 048
     Dates: start: 20110110
  7. NUCYNTA [Suspect]
     Route: 048
     Dates: start: 20110101

REACTIONS (2)
  - HOSPITALISATION [None]
  - DRUG ABUSE [None]
